FAERS Safety Report 18583706 (Version 3)
Quarter: 2020Q4

REPORT INFORMATION
  Report Type: Spontaneous
  Country: JP (occurrence: JP)
  Receive Date: 20201207
  Receipt Date: 20201223
  Transmission Date: 20210114
  Serious: Yes (Hospitalization, Other)
  Sender: FDA-Public Use
  Company Number: JP-JNJFOC-20201207813

PATIENT
  Age: 81 Year
  Sex: Male
  Weight: 55 kg

DRUGS (2)
  1. ZYTIGA [Suspect]
     Active Substance: ABIRATERONE ACETATE
     Indication: PROSTATE CANCER METASTATIC
     Dosage: DOSE UNKNOWN
     Route: 048
  2. ZYTIGA [Suspect]
     Active Substance: ABIRATERONE ACETATE
     Indication: PROSTATE CANCER METASTATIC
     Route: 048
     Dates: start: 202001, end: 202011

REACTIONS (3)
  - Pneumonia bacterial [Unknown]
  - Off label use [Unknown]
  - Prescribed underdose [Unknown]

NARRATIVE: CASE EVENT DATE: 202011
